FAERS Safety Report 9789810 (Version 1)
Quarter: 2013Q4

REPORT INFORMATION
  Report Type: Spontaneous
  Country: FR (occurrence: None)
  Receive Date: 20131227
  Receipt Date: 20131227
  Transmission Date: 20140711
  Serious: Yes (Hospitalization)
  Sender: FDA-Public Use
  Company Number: 1954858

PATIENT
  Age: 60 Year
  Sex: Female

DRUGS (6)
  1. CARBOPLATIN [Suspect]
     Indication: ENDOMETRIAL ADENOCARCINOMA
     Dates: start: 20120111, end: 20120111
  2. PACLITAXEL EBEWE [Concomitant]
  3. POLARAMINE [Concomitant]
  4. METHYLPREDNISOLONE MERCK [Concomitant]
  5. ZOPHREN [Concomitant]
  6. AZANTAC [Concomitant]

REACTIONS (2)
  - Feeling hot [None]
  - Nausea [None]
